FAERS Safety Report 6836434-5 (Version None)
Quarter: 2010Q3

REPORT INFORMATION
  Report Type: 
  Country: None (occurrence: None)
  Receive Date: 20100713
  Receipt Date: 20100701
  Transmission Date: 20110219
  Serious: Yes (Hospitalization, Other)
  Sender: FDA-Public Use
  Company Number: US-PFIZER INC-2010083103

PATIENT
  Sex: Female
  Weight: 49.887 kg

DRUGS (3)
  1. ALPRAZOLAM [Suspect]
     Indication: FEELING OF RELAXATION
     Dosage: 1 UNK, UNK
     Route: 048
  2. CLINDAMYCIN HCL [Suspect]
     Dosage: UNK
  3. ALPRAZOLAM [Suspect]

REACTIONS (5)
  - ANEURYSM [None]
  - HEMIPLEGIA [None]
  - HYPERSENSITIVITY [None]
  - MIGRAINE [None]
  - PARKINSONISM [None]
